FAERS Safety Report 9487202 (Version 1)
Quarter: 2013Q3

REPORT INFORMATION
  Report Type: Spontaneous
  Country: TN (occurrence: None)
  Receive Date: 20130823
  Receipt Date: 20130823
  Transmission Date: 20140515
  Serious: Yes (Other)
  Sender: FDA-Public Use
  Company Number: NSR_01219_2013

PATIENT
  Age: 24 Year
  Sex: Female

DRUGS (3)
  1. LEFLUNOMIDE [Suspect]
     Indication: RHEUMATOID ARTHRITIS
  2. PREDNISONE [Concomitant]
  3. FOLATE [Concomitant]

REACTIONS (2)
  - Drug level above therapeutic [None]
  - Hepatitis [None]
